FAERS Safety Report 8085886-4 (Version None)
Quarter: 2012Q1

REPORT INFORMATION
  Report Type: 
  Country: None (occurrence: None)
  Receive Date: 20120128
  Receipt Date: 20110421
  Transmission Date: 20120608
  Serious: No
  Sender: FDA-Public Use
  Company Number: US-ABBOTT-11P-163-0720501-00

PATIENT
  Sex: Female
  Weight: 56.75 kg

DRUGS (5)
  1. HUMIRA [Suspect]
     Indication: ARTHRALGIA
  2. PREVACID [Concomitant]
     Indication: GASTROOESOPHAGEAL REFLUX DISEASE
  3. ACCUPRIL [Concomitant]
     Indication: PROPHYLAXIS
  4. ACCUPRIL [Concomitant]
     Indication: SCLERODERMA RENAL CRISIS
  5. HUMIRA [Suspect]
     Indication: SCLERODERMA
     Dates: start: 20110225

REACTIONS (5)
  - FEELING ABNORMAL [None]
  - FATIGUE [None]
  - DIZZINESS [None]
  - DIARRHOEA [None]
  - DRY MOUTH [None]
